FAERS Safety Report 5583818-1 (Version None)
Quarter: 2008Q1

REPORT INFORMATION
  Report Type: 
  Country: None (occurrence: None)
  Receive Date: 20080108
  Receipt Date: 20071231
  Transmission Date: 20080703
  Serious: Yes (Other)
  Sender: FDA-Public Use
  Company Number: PHFR2007GB03723

PATIENT
  Age: 50 Year
  Sex: Female

DRUGS (7)
  1. DICLOFENAC [Suspect]
     Indication: ARTHRITIS
     Dosage: 50 MG, TID
     Route: 048
     Dates: end: 20071212
  2. CITALOPRAM HYDROBROMIDE [Concomitant]
     Indication: DEPRESSION
     Dosage: 20 MG, BID
     Route: 048
  3. CO-CODAMOL [Concomitant]
     Route: 048
  4. MONTELUKAST SODIUM [Concomitant]
     Indication: ASTHMA
     Dosage: 10 MG, QD
  5. ALBUTEROL [Concomitant]
     Indication: ASTHMA
     Dosage: 1 DF, PRN
  6. SYMBICORT [Concomitant]
     Indication: ASTHMA
     Dosage: UNK, BID
  7. TOLTERODINE TARTRATE [Concomitant]
     Dosage: 2 MG, BID
     Route: 048

REACTIONS (2)
  - GENITAL DISCHARGE [None]
  - HAEMATEMESIS [None]
